FAERS Safety Report 19009061 (Version 1)
Quarter: 2021Q1

REPORT INFORMATION
  Report Type: Spontaneous
  Country: CA (occurrence: CA)
  Receive Date: 20210316
  Receipt Date: 20210316
  Transmission Date: 20210420
  Serious: Yes (Other)
  Sender: FDA-Public Use
  Company Number: CA-CELLTRION INC.-2020CA024995

PATIENT

DRUGS (13)
  1. INFLECTRA [Suspect]
     Active Substance: INFLIXIMAB-DYYB
     Indication: CROHN^S DISEASE
     Dosage: 10 MG/KG AT 0, 2, 6 WEEKS, THEN 5 MG/KG EVERY 8 WEEKS
     Route: 042
     Dates: start: 20200808
  2. INFLECTRA [Suspect]
     Active Substance: INFLIXIMAB-DYYB
     Dosage: 10 MG/KG AT 0, 2, 6 WEEKS, THEN 5 MG/KG EVERY 8 WEEKS
     Route: 042
     Dates: start: 20200917
  3. APO?PREDNISONE [Concomitant]
     Active Substance: PREDNISONE
     Dosage: UNKNOWN, TAPER
     Route: 065
     Dates: start: 202006
  4. METHOTREXATE. [Concomitant]
     Active Substance: METHOTREXATE
     Dosage: UNK
     Route: 065
     Dates: start: 20200723
  5. RISEDRONATE [Concomitant]
     Active Substance: RISEDRONATE SODIUM
     Dosage: UNK
     Route: 065
  6. INFLECTRA [Suspect]
     Active Substance: INFLIXIMAB-DYYB
     Dosage: 10 MG/KG AT 0, 2, 6 WEEKS, THEN 5 MG/KG EVERY 8 WEEKS
     Route: 042
     Dates: start: 20200821
  7. INFLECTRA [Suspect]
     Active Substance: INFLIXIMAB-DYYB
     Dosage: 10 MG/KG AT 0, 2, 6 WEEKS, THEN 5 MG/KG EVERY 8 WEEKS
     Route: 042
     Dates: start: 20210107
  8. BISOPROLOL [Concomitant]
     Active Substance: BISOPROLOL
     Dosage: UNK
     Route: 065
  9. FOLIC ACID. [Concomitant]
     Active Substance: FOLIC ACID
     Dosage: UNK
     Route: 065
  10. INFLECTRA [Suspect]
     Active Substance: INFLIXIMAB-DYYB
     Dosage: 10 MG/KG AT 0, 2, 6 WEEKS, THEN 5 MG/KG EVERY 8 WEEKS
     Route: 042
     Dates: start: 20201112
  11. INFLECTRA [Suspect]
     Active Substance: INFLIXIMAB-DYYB
     Dosage: 10 MG/KG AT 0, 2, 6 WEEKS, THEN 5 MG/KG EVERY 8 WEEKS
     Route: 042
     Dates: start: 20210305
  12. AMOXICLAV [Concomitant]
     Active Substance: AMOXICILLIN\CLAVULANATE POTASSIUM
     Dosage: UNK
     Route: 065
  13. CALCIUM [Concomitant]
     Active Substance: CALCIUM
     Dosage: UNK
     Route: 065

REACTIONS (6)
  - Intentional product use issue [Unknown]
  - Oxygen saturation decreased [Unknown]
  - Blood pressure increased [Unknown]
  - Heart rate decreased [Unknown]
  - Off label use [Unknown]
  - Gastrointestinal disorder [Recovered/Resolved]

NARRATIVE: CASE EVENT DATE: 20200808
